FAERS Safety Report 10142714 (Version 1)
Quarter: 2014Q2

REPORT INFORMATION
  Report Type: Spontaneous
  Country: DE (occurrence: None)
  Receive Date: 20140425
  Receipt Date: 20140425
  Transmission Date: 20141212
  Serious: Yes (Hospitalization)
  Sender: FDA-Public Use
  Company Number: SYM-2014-19938

PATIENT
  Age: 75 Year
  Sex: Male

DRUGS (1)
  1. ZYCLARA [Suspect]
     Indication: ACTINIC KERATOSIS
     Route: 061
     Dates: start: 201403, end: 20140312

REACTIONS (14)
  - Dermatitis [None]
  - Fatigue [None]
  - Body temperature increased [None]
  - Skin ulcer [None]
  - Influenza like illness [None]
  - Oropharyngeal pain [None]
  - Ear pain [None]
  - Pyoderma [None]
  - Application site necrosis [None]
  - Application site haemorrhage [None]
  - Application site erythema [None]
  - Application site erosion [None]
  - Application site discolouration [None]
  - Application site swelling [None]
